FAERS Safety Report 13455266 (Version 5)
Quarter: 2018Q1

REPORT INFORMATION
  Report Type: Spontaneous
  Country: US (occurrence: US)
  Receive Date: 20170419
  Receipt Date: 20180307
  Transmission Date: 20180508
  Serious: Yes (Hospitalization)
  Sender: FDA-Public Use
  Company Number: US-PFIZER INC-2017161987

PATIENT
  Age: 74 Year
  Sex: Female
  Weight: 74.83 kg

DRUGS (4)
  1. XELJANZ XR [Suspect]
     Active Substance: TOFACITINIB CITRATE
     Indication: RHEUMATOID ARTHRITIS
     Dosage: 11 MG, 1X/DAY (ONCE A DAY)
     Route: 048
     Dates: start: 201703
  2. AMLODIPINE [Concomitant]
     Active Substance: AMLODIPINE BESYLATE
     Indication: HYPERTENSION
     Dosage: 5 MG, UNK
  3. VALSARTAN. [Concomitant]
     Active Substance: VALSARTAN
     Indication: HYPERTENSION
     Dosage: 350 MG, 1X/DAY
  4. VALSARTAN. [Concomitant]
     Active Substance: VALSARTAN
     Dosage: 320 MG, UNK

REACTIONS (5)
  - Intentional product misuse [Unknown]
  - Nasopharyngitis [Not Recovered/Not Resolved]
  - Cough [Unknown]
  - Arthropathy [Unknown]
  - Weight increased [Unknown]
